FAERS Safety Report 9193407 (Version 2)
Quarter: 2013Q2

REPORT INFORMATION
  Report Type: Spontaneous
  Country: US (occurrence: US)
  Receive Date: 20130327
  Receipt Date: 20130501
  Transmission Date: 20140414
  Serious: Yes (Other)
  Sender: FDA-Public Use
  Company Number: US-PFIZER INC-2012045367

PATIENT
  Age: 57 Year
  Sex: Female
  Weight: 106.6 kg

DRUGS (11)
  1. LIPITOR [Suspect]
     Indication: BLOOD CHOLESTEROL INCREASED
     Dosage: 80 MG, DAILY
     Route: 048
  2. METOPROLOL [Concomitant]
     Indication: HYPERTENSION
     Dosage: 12.5 MG, 2X/DAY
  3. LISINOPRIL [Concomitant]
     Indication: HYPERTENSION
     Dosage: 5 MG, 2X/DAY
     Route: 048
  4. METFORMIN [Concomitant]
     Indication: DIABETES MELLITUS
     Dosage: 1000 MG, 2X/DAY
  5. LEVOTHYROXINE [Concomitant]
     Indication: THYROID CANCER
     Dosage: 150 UG, DAILY
  6. NEURONTIN [Concomitant]
     Dosage: 300 MG, 3X/DAY
  7. GLIPIZIDE [Concomitant]
     Dosage: 10 MG, 2X/DAY
  8. CALCIUM [Concomitant]
     Dosage: UNK, DAILY
  9. TRAZODONE [Concomitant]
     Indication: SLEEP DISORDER
     Dosage: 100 MG, UNK
  10. PLAVIX [Concomitant]
     Indication: PERIPHERAL VASCULAR DISORDER
     Dosage: 75 MG, DAILY
     Route: 048
  11. ASPIRIN [Concomitant]
     Dosage: UNK

REACTIONS (2)
  - Thyroid cancer [Unknown]
  - Dysphonia [Unknown]
